FAERS Safety Report 5092249-2 (Version None)
Quarter: 2006Q3

REPORT INFORMATION
  Report Type: 
  Country: None (occurrence: None)
  Receive Date: 20060727
  Receipt Date: 20060612
  Transmission Date: 20061208
  Serious: Yes (Other)
  Sender: FDA-Public Use
  Company Number: 2006058279

PATIENT
  Age: 73 Year
  Sex: Male
  Weight: 87.0906 kg

DRUGS (6)
  1. LYRICA [Suspect]
     Indication: NEUROPATHY PERIPHERAL
     Dosage: 150 MG (50 MG, 3 IN 1 D), ORAL
     Route: 048
     Dates: start: 20060101, end: 20060101
  2. NORVASC [Concomitant]
  3. GEMFIBROZIL [Concomitant]
  4. ZOCOR [Concomitant]
  5. NEXIUM [Concomitant]
  6. VITAMIN B12 [Concomitant]

REACTIONS (2)
  - AMAUROSIS FUGAX [None]
  - WEIGHT INCREASED [None]
